FAERS Safety Report 9181556 (Version 2)
Quarter: 2013Q2

REPORT INFORMATION
  Report Type: Spontaneous
  Country: KR (occurrence: KR)
  Receive Date: 20130322
  Receipt Date: 20130408
  Transmission Date: 20140414
  Serious: Yes (Hospitalization)
  Sender: FDA-Public Use
  Company Number: KR-ELI_LILLY_AND_COMPANY-KR201303005278

PATIENT
  Age: 51 Year
  Sex: Male

DRUGS (2)
  1. HUMALOG 50% LISPRO, 50% NPL [Suspect]
     Indication: DIABETES MELLITUS
     Dosage: 54 U, QD
     Route: 058
     Dates: start: 20130124, end: 201303
  2. HUMALOG 50% LISPRO, 50% NPL [Suspect]
     Dosage: 100 U, QD
     Route: 058
     Dates: start: 201303

REACTIONS (2)
  - Hepatic enzyme increased [Recovering/Resolving]
  - Blood glucose increased [Unknown]
